FAERS Safety Report 15292517 (Version 1)
Quarter: 2018Q3

REPORT INFORMATION
  Report Type: Report from Study
  Country: BR (occurrence: BR)
  Receive Date: 20180818
  Receipt Date: 20180818
  Transmission Date: 20181010
  Serious: Yes (Other)
  Sender: FDA-Public Use
  Company Number: BR-REGENERON PHARMACEUTICALS, INC.-2018-33895

PATIENT

DRUGS (11)
  1. EYLEA [Suspect]
     Active Substance: AFLIBERCEPT
     Dosage: 1 DF, ONCE ? LEFT EYE
     Dates: start: 201806, end: 201806
  2. AAS [Concomitant]
     Active Substance: ASPIRIN
     Indication: THROMBOSIS PROPHYLAXIS
     Dosage: 2 DF, QD AFTER LUNCH
     Dates: start: 2015
  3. EYLEA [Suspect]
     Active Substance: AFLIBERCEPT
     Dosage: LAST APPLICATION ON RIGHT EYE
     Dates: start: 201801, end: 201801
  4. SUSTRATE [Concomitant]
     Active Substance: PROPATYL NITRATE
     Indication: CORONARY ARTERY DILATATION
     Dosage: 1 DF, BID
     Dates: start: 2015
  5. EYLEA [Suspect]
     Active Substance: AFLIBERCEPT
     Dosage: EVERY SIX MONTHS (TOTAL NUMBER OF INJECTIONS UNKNOWN)
     Dates: start: 20180708, end: 20180708
  6. SIVASTIN [Concomitant]
     Active Substance: SIMVASTATIN
     Indication: HYPERCHOLESTEROLAEMIA
     Dosage: 15 MG, QD
     Dates: start: 2013
  7. CALCIUM CARBONATE W/COLECALCIFEROL [Concomitant]
     Active Substance: CALCIUM CARBONATE\CHOLECALCIFEROL
     Indication: OSTEOPOROSIS
     Dosage: 1 DF, UNK
     Dates: start: 2008
  8. EYLEA [Suspect]
     Active Substance: AFLIBERCEPT
     Indication: NEOVASCULAR AGE-RELATED MACULAR DEGENERATION
     Dosage: EVERY 2/3 MONTHS (AFTER SURGERY 2/3 INJECTION? LEFT EYE, AND 1 INJECTION? RIGHT EYE)
  9. EYLEA [Suspect]
     Active Substance: AFLIBERCEPT
     Dosage: 1 DF, ONCE ? LEFT EYE (NEXT INJECTION SCHEDULED TO 19?SEP?2018)
     Dates: start: 20180708, end: 20180708
  10. EYLEA [Suspect]
     Active Substance: AFLIBERCEPT
     Dosage: WHEN CHANGED CLINIC, RESTARTED TO MONTHLY INJECTIONS
  11. OMEGA 3?6?9 [Concomitant]
     Active Substance: FISH OIL
     Indication: VITAMIN SUPPLEMENTATION
     Dosage: 1 DF, BID
     Dates: start: 2013

REACTIONS (3)
  - Eye haemorrhage [Unknown]
  - Cataract [Unknown]
  - Blindness unilateral [Not Recovered/Not Resolved]

NARRATIVE: CASE EVENT DATE: 2017
